FAERS Safety Report 4444729-8 (Version None)
Quarter: 2004Q3

REPORT INFORMATION
  Report Type: 
  Country: None (occurrence: None)
  Receive Date: 20040903
  Receipt Date: 20040825
  Transmission Date: 20050211
  Serious: Yes (Hospitalization, Other)
  Sender: FDA-Public Use
  Company Number: 2004059429

PATIENT
  Age: 79 Year
  Sex: Female
  Weight: 70 kg

DRUGS (7)
  1. SERTRALINE HYDROCHLORIDE [Suspect]
     Indication: DEPRESSION
     Dosage: 50 MG (1 IN 1 D); ORAL
     Route: 048
     Dates: start: 20010101
  2. DIGOXIN [Concomitant]
  3. ACENOCOUMAROL [Concomitant]
  4. RAMIPRIL [Concomitant]
  5. MIANSERIN [Concomitant]
  6. DONEPEZIL HCL [Concomitant]
  7. ROSUVASTATIN [Concomitant]

REACTIONS (1)
  - ANAEMIA [None]
